FAERS Safety Report 7451919-9 (Version None)
Quarter: 2011Q2

REPORT INFORMATION
  Report Type: 
  Country: None (occurrence: None)
  Receive Date: 20110425
  Receipt Date: 20110408
  Transmission Date: 20111010
  Serious: Yes (Hospitalization)
  Sender: FDA-Public Use
  Company Number: 030969

PATIENT
  Sex: Male
  Weight: 47.6 kg

DRUGS (11)
  1. PERCOCET [Concomitant]
  2. PREDNISONE [Concomitant]
  3. CERTOLIZUMAB PEGOL [Suspect]
     Indication: CROHN'S DISEASE
     Dosage: SEE IMAGE
     Route: 058
     Dates: start: 20100326
  4. CERTOLIZUMAB PEGOL [Suspect]
     Indication: CROHN'S DISEASE
     Dosage: SEE IMAGE
     Route: 058
     Dates: start: 20110114
  5. CERTOLIZUMAB PEGOL [Suspect]
     Indication: CROHN'S DISEASE
     Dosage: SEE IMAGE
     Route: 058
     Dates: start: 20110405
  6. CERTOLIZUMAB PEGOL [Suspect]
     Indication: CROHN'S DISEASE
     Dosage: SEE IMAGE
     Route: 058
     Dates: start: 20100629, end: 20101213
  7. CERTOLIZUMAB PEGOL [Suspect]
     Indication: CROHN'S DISEASE
     Dosage: SEE IMAGE
     Route: 058
     Dates: start: 20110121
  8. CERTOLIZUMAB PEGOL [Suspect]
     Indication: CROHN'S DISEASE
     Dosage: SEE IMAGE
     Route: 058
     Dates: start: 20110225
  9. CLONAZEPAM [Concomitant]
  10. MERCAPTOPURINE [Concomitant]
  11. LEVAQUIN [Concomitant]

REACTIONS (9)
  - ASTHENIA [None]
  - PNEUMONIA [None]
  - EOSINOPHILIC OESOPHAGITIS [None]
  - FLUID INTAKE REDUCED [None]
  - DEHYDRATION [None]
  - WHITE BLOOD CELL COUNT INCREASED [None]
  - RED BLOOD CELL COUNT DECREASED [None]
  - DECREASED APPETITE [None]
  - HIATUS HERNIA [None]
